FAERS Safety Report 12731741 (Version 2)
Quarter: 2016Q3

REPORT INFORMATION
  Report Type: Spontaneous
  Country: US (occurrence: US)
  Receive Date: 20160912
  Receipt Date: 20160927
  Transmission Date: 20161109
  Serious: No
  Sender: FDA-Public Use
  Company Number: US-PFIZER INC-2016422624

PATIENT

DRUGS (2)
  1. VFEND [Suspect]
     Active Substance: VORICONAZOLE
     Dosage: 300 (UNITS NOT AVAILABLE) BID
  2. VFEND [Suspect]
     Active Substance: VORICONAZOLE
     Dosage: DOSAGE HIGHER THAN RECOMMENDED 350 MG, TWICE A DAY

REACTIONS (2)
  - Intentional product use issue [Unknown]
  - Drug level below therapeutic [Unknown]
